FAERS Safety Report 8877450 (Version 1)
Quarter: 2012Q4

REPORT INFORMATION
  Report Type: Spontaneous
  Country: US (occurrence: None)
  Receive Date: 20121026
  Receipt Date: 20121026
  Transmission Date: 20130627
  Serious: Yes (Hospitalization)
  Sender: FDA-Public Use
  Company Number: None

PATIENT
  Age: 81 Year
  Sex: Female
  Weight: 65 kg

DRUGS (2)
  1. DABIGATRAN [Suspect]
     Indication: DVT PROPHYLAXIS
     Route: 048
     Dates: start: 20110818, end: 20120724
  2. ECOTRIN [Concomitant]

REACTIONS (1)
  - Upper gastrointestinal haemorrhage [None]
